FAERS Safety Report 5586412-1 (Version None)
Quarter: 2008Q1

REPORT INFORMATION
  Report Type: 
  Country: None (occurrence: None)
  Receive Date: 20080107
  Receipt Date: 20080107
  Transmission Date: 20080703
  Serious: Yes (Hospitalization)
  Sender: FDA-Public Use
  Company Number: None

PATIENT
  Age: 61 Year
  Sex: Male
  Weight: 86 kg

DRUGS (1)
  1. HYDROCHLOROTHIAZIDE [Suspect]
     Dosage: 25MG EVERY DAY PO
     Route: 048
     Dates: start: 20021214, end: 20071214

REACTIONS (2)
  - HYPONATRAEMIA [None]
  - ORTHOSTATIC HYPOTENSION [None]
